FAERS Safety Report 24317198 (Version 1)
Quarter: 2024Q3

REPORT INFORMATION
  Report Type: Spontaneous
  Country: CA (occurrence: CA)
  Receive Date: 20240913
  Receipt Date: 20240913
  Transmission Date: 20241016
  Serious: Yes (Other)
  Sender: ACERUS PHARMACEUTICALS
  Company Number: CA-ACERUSPHRM-2024-CA-000741

PATIENT
  Age: 33 Year
  Sex: Male

DRUGS (1)
  1. TESTOSTERONE [Suspect]
     Active Substance: TESTOSTERONE
     Indication: Drug therapy

REACTIONS (1)
  - Endometrial adenocarcinoma [Unknown]
